FAERS Safety Report 6416092-4 (Version None)
Quarter: 2009Q4

REPORT INFORMATION
  Report Type: 
  Country: None (occurrence: None)
  Receive Date: 20091023
  Receipt Date: 20091014
  Transmission Date: 20100525
  Serious: Yes (Other)
  Sender: FDA-Public Use
  Company Number: 2008US002695

PATIENT
  Age: 33 Year
  Sex: Male
  Weight: 79.8 kg

DRUGS (2)
  1. PROTOPIC [Suspect]
     Indication: ECZEMA
     Dosage: 0.1 %, TOPICAL
     Route: 061
     Dates: start: 20020201, end: 20030301
  2. ELIDEL [Suspect]
     Indication: ECZEMA
     Dosage: TOPICAL
     Route: 061
     Dates: start: 20030101, end: 20030101

REACTIONS (9)
  - HEPATIC LESION [None]
  - HODGKIN'S DISEASE [None]
  - INFECTION [None]
  - LYMPHADENOPATHY [None]
  - NODULE [None]
  - PLATELET COUNT INCREASED [None]
  - PLEURAL EFFUSION [None]
  - PULMONARY TOXICITY [None]
  - RESPIRATORY DISTRESS [None]
